FAERS Safety Report 9133515 (Version 1)
Quarter: 2013Q1

REPORT INFORMATION
  Report Type: Spontaneous
  Country: CH (occurrence: CH)
  Receive Date: 20130301
  Receipt Date: 20130301
  Transmission Date: 20140127
  Serious: Yes (Other)
  Sender: FDA-Public Use
  Company Number: CH-PFIZER INC-2013069082

PATIENT
  Age: 73 Year
  Sex: Female

DRUGS (1)
  1. XALATAN [Suspect]
     Dosage: UNK, BILATERAL

REACTIONS (6)
  - Dyspnoea [Unknown]
  - Movement disorder [Unknown]
  - Eye swelling [Unknown]
  - Arthralgia [Unknown]
  - Breast pain [Unknown]
  - Headache [Unknown]
